FAERS Safety Report 9895922 (Version 2)
Quarter: 2014Q1

REPORT INFORMATION
  Report Type: Spontaneous
  Country: US (occurrence: US)
  Receive Date: 20140213
  Receipt Date: 20140213
  Transmission Date: 20141002
  Serious: No
  Sender: FDA-Public Use
  Company Number: US-BRISTOL-MYERS SQUIBB COMPANY-17315177

PATIENT
  Age: 56 Year
  Sex: Female

DRUGS (1)
  1. ABATACEPT SUBQ INJECTION 125MG/ML [Suspect]
     Indication: RHEUMATOID ARTHRITIS
     Dosage: LAST INF:21JAN2013,28JAN13
     Route: 058
     Dates: start: 201208

REACTIONS (13)
  - Urinary tract infection [Unknown]
  - Vomiting [Unknown]
  - Influenza like illness [Unknown]
  - Migraine [Unknown]
  - Injection site reaction [Unknown]
  - Headache [Unknown]
  - Limb injury [Unknown]
  - Periorbital contusion [Unknown]
  - Tooth fracture [Unknown]
  - Depression [Unknown]
  - Fall [Unknown]
  - Malaise [Unknown]
  - Drug ineffective [Unknown]
